FAERS Safety Report 9178502 (Version 1)
Quarter: 2012Q4

REPORT INFORMATION
  Report Type: 
  Country: US (occurrence: US)
  Receive Date: 20121029
  Receipt Date: 20121029
  Transmission Date: 20130627
  Serious: No
  Sender: FDA-Public Use
  Company Number: US-PFIZER INC-2012265711

PATIENT
  Age: 63 Year
  Sex: Female

DRUGS (3)
  1. LIPITOR [Suspect]
     Indication: HIGH CHOLESTEROL
     Dosage: 40 mg, daily
     Route: 048
     Dates: start: 2000, end: 201104
  2. BYSTOLIC [Concomitant]
     Indication: HYPERTENSION
     Dosage: 5 mg, daily
  3. ZETIA [Concomitant]
     Indication: HIGH CHOLESTEROL
     Dosage: UNK, daily

REACTIONS (1)
  - Pain [Recovered/Resolved]
